FAERS Safety Report 24315082 (Version 2)
Quarter: 2024Q3

REPORT INFORMATION
  Report Type: Spontaneous
  Country: US (occurrence: US)
  Receive Date: 20240913
  Receipt Date: 20240913
  Transmission Date: 20241017
  Serious: Yes (Other)
  Sender: ROCHE
  Company Number: US-ROCHE-10000074283

PATIENT
  Age: 18 Year
  Sex: Male

DRUGS (2)
  1. HEMLIBRA [Suspect]
     Active Substance: EMICIZUMAB-KXWH
     Indication: Factor VIII deficiency
     Route: 058
     Dates: start: 2017
  2. HEMLIBRA [Suspect]
     Active Substance: EMICIZUMAB-KXWH
     Route: 058

REACTIONS (6)
  - COVID-19 [Recovered/Resolved]
  - Headache [Recovered/Resolved]
  - Haemoptysis [Recovered/Resolved]
  - Dyspnoea [Recovered/Resolved]
  - Pneumonia [Unknown]
  - Cough [Unknown]

NARRATIVE: CASE EVENT DATE: 20240101
